FAERS Safety Report 18973163 (Version 1)
Quarter: 2021Q1

REPORT INFORMATION
  Report Type: Other
  Country: US (occurrence: US)
  Receive Date: 20210305
  Receipt Date: 20210305
  Transmission Date: 20210420
  Serious: Yes (Other)
  Sender: FDA-Public Use
  Company Number: US-ROCHE-2777554

PATIENT
  Age: 49 Year
  Sex: Female
  Weight: 88.98 kg

DRUGS (1)
  1. OCREVUS [Suspect]
     Active Substance: OCRELIZUMAB
     Indication: MULTIPLE SCLEROSIS
     Route: 042
     Dates: start: 201710

REACTIONS (6)
  - Neck pain [Recovering/Resolving]
  - COVID-19 [Not Recovered/Not Resolved]
  - Muscular weakness [Recovering/Resolving]
  - Multiple sclerosis relapse [Recovered/Resolved]
  - Hypoaesthesia [Recovering/Resolving]
  - Headache [Recovering/Resolving]

NARRATIVE: CASE EVENT DATE: 201806
